FAERS Safety Report 9500537 (Version 3)
Quarter: 2014Q1

REPORT INFORMATION
  Report Type: Report from Study
  Country: FR (occurrence: FR)
  Receive Date: 20130905
  Receipt Date: 20140207
  Transmission Date: 20141002
  Serious: Yes (Hospitalization, Other)
  Sender: FDA-Public Use
  Company Number: FR-009507513-1309FRA000439

PATIENT
  Age: 44 Year
  Sex: Male
  Weight: 63 kg

DRUGS (13)
  1. BOCEPREVIR [Suspect]
     Indication: HEPATITIS C
     Dosage: 800 MG, TID
     Route: 048
     Dates: start: 20130422, end: 20131106
  2. RIBAVIRIN [Suspect]
     Indication: HEPATITIS C
     Dosage: 1000 MG, QD
     Route: 048
     Dates: start: 20130328, end: 20130513
  3. RIBAVIRIN [Suspect]
     Dosage: 800 MG, QD
     Route: 048
     Dates: start: 20130514, end: 20130521
  4. RIBAVIRIN [Suspect]
     Dosage: 600 MG, QD
     Route: 048
     Dates: start: 20130522, end: 20131106
  5. PEGINTERFERON ALFA-2A [Suspect]
     Indication: HEPATITIS C
     Dosage: 180 MICROGRAM, QW
     Route: 058
     Dates: start: 20130327, end: 20130501
  6. PEGINTERFERON ALFA-2A [Suspect]
     Dosage: 135 MICROGRAM, QW
     Route: 058
     Dates: start: 20130508, end: 20130612
  7. PEGINTERFERON ALFA-2A [Suspect]
     Dosage: 50 MICROGRAM, QW
     Route: 058
     Dates: start: 20130626, end: 20131030
  8. DOLIPRANE [Concomitant]
     Indication: PAIN
     Dosage: 500 MG, PRN
     Route: 048
     Dates: start: 20120515
  9. SPECIAFOLDINE [Concomitant]
     Indication: ANAEMIA PROPHYLAXIS
     Dosage: 5 MG, QD
     Dates: start: 20130328
  10. NEORECORMON [Concomitant]
     Indication: ANAEMIA
     Dosage: 30000 IU, QW
     Dates: start: 20130522
  11. UVEDOSE [Concomitant]
     Indication: VITAMIN D DEFICIENCY
     Dosage: 1 DF, UNK
     Dates: start: 201306
  12. ELTROMBOPAG OLAMINE [Concomitant]
     Indication: THROMBOCYTOPENIA
     Dosage: 25 MG, QD
     Dates: start: 20130626, end: 20130708
  13. ELTROMBOPAG OLAMINE [Concomitant]
     Dosage: 50 MG, QD
     Dates: start: 20130709

REACTIONS (2)
  - Thrombocytopenia [Not Recovered/Not Resolved]
  - Calculus ureteric [Unknown]
